FAERS Safety Report 9369354 (Version 1)
Quarter: 2013Q2

REPORT INFORMATION
  Report Type: Spontaneous
  Country: US (occurrence: None)
  Receive Date: 20130625
  Receipt Date: 20130625
  Transmission Date: 20140414
  Serious: Yes (Other)
  Sender: FDA-Public Use
  Company Number: None

PATIENT
  Age: 77 Year
  Sex: Female
  Weight: 61.24 kg

DRUGS (1)
  1. LOSARTAN POTASSIUM [Suspect]
     Indication: HYPERTENSION
     Dosage: 1 A DAY??APRIL 22-
     Route: 048
     Dates: end: 201106

REACTIONS (5)
  - Pruritus [None]
  - Skin irritation [None]
  - Paraesthesia [None]
  - Drug ineffective [None]
  - Fear of disease [None]
